FAERS Safety Report 11801871 (Version 5)
Quarter: 2015Q4

REPORT INFORMATION
  Report Type: Spontaneous
  Country: US (occurrence: US)
  Receive Date: 20151204
  Receipt Date: 20151214
  Transmission Date: 20160305
  Serious: Yes (Death, Other)
  Sender: FDA-Public Use
  Company Number: US-ACTAVIS-2015-25984

PATIENT
  Age: 21 Year
  Sex: Female
  Weight: 59 kg

DRUGS (6)
  1. CARBAMAZEPINE (AELLC) [Interacting]
     Active Substance: CARBAMAZEPINE
     Indication: INTENTIONAL OVERDOSE
     Dosage: 17.8 G, SINGLE
     Route: 048
  2. TOPIRAMATE (WATSON LABORATORIES) [Interacting]
     Active Substance: TOPIRAMATE
     Indication: INTENTIONAL OVERDOSE
     Dosage: UNK
     Route: 065
  3. IBUPROFEN (AMALLC) [Suspect]
     Active Substance: IBUPROFEN
     Indication: INTENTIONAL OVERDOSE
     Dosage: 14.4 G, SINGLE
     Route: 048
  4. HYDROXYZINE (WATSON LABORATORIES) [Suspect]
     Active Substance: HYDROXYZINE HYDROCHLORIDE
     Indication: INTENTIONAL OVERDOSE
     Dosage: 4.5 G, SINGLE
     Route: 048
  5. FLUOXETINE (WATSON LABORATORIES) [Suspect]
     Active Substance: FLUOXETINE HYDROCHLORIDE
     Indication: INTENTIONAL OVERDOSE
     Dosage: 1.2 G, SINGLE
     Route: 048
  6. LAMOTRIGINE (WATSON LABORATORIES) [Suspect]
     Active Substance: LAMOTRIGINE
     Indication: INTENTIONAL OVERDOSE
     Dosage: UNK
     Route: 048

REACTIONS (5)
  - Overdose [Not Recovered/Not Resolved]
  - Cardiac arrest [Fatal]
  - Acute respiratory distress syndrome [Unknown]
  - Generalised tonic-clonic seizure [Unknown]
  - Drug interaction [Not Recovered/Not Resolved]
